FAERS Safety Report 5618878-2 (Version None)
Quarter: 2008Q1

REPORT INFORMATION
  Report Type: 
  Country: None (occurrence: None)
  Receive Date: 20080207
  Receipt Date: 20080201
  Transmission Date: 20080703
  Serious: Yes (Hospitalization, Other)
  Sender: FDA-Public Use
  Company Number: MX-WYE-H02197508

PATIENT
  Sex: Female
  Weight: 73.6 kg

DRUGS (2)
  1. TIGECYCLINE [Suspect]
     Indication: DIABETIC FOOT INFECTION
     Route: 042
     Dates: start: 20080105, end: 20080118
  2. INSULIN ASPART [Concomitant]
     Indication: TYPE 2 DIABETES MELLITUS
     Dosage: 30 UNIT EVERY 24 HR
     Route: 058

REACTIONS (4)
  - BLOOD AMYLASE INCREASED [None]
  - LIPASE INCREASED [None]
  - NAUSEA [None]
  - VOMITING [None]
